FAERS Safety Report 5671138-6 (Version None)
Quarter: 2008Q1

REPORT INFORMATION
  Report Type: 
  Country: None (occurrence: None)
  Receive Date: 20080318
  Receipt Date: 20080229
  Transmission Date: 20080703
  Serious: No
  Sender: FDA-Public Use
  Company Number: US-JNJFOC-20080300507

PATIENT
  Age: 25 Year
  Sex: Female

DRUGS (5)
  1. INVEGA [Suspect]
     Route: 048
  2. INVEGA [Suspect]
     Indication: BIPOLAR I DISORDER
     Route: 048
  3. TOPAMAX [Concomitant]
     Indication: BIPOLAR DISORDER
     Route: 048
  4. LITHIUM CARBONATE [Concomitant]
  5. COGENTIN [Concomitant]

REACTIONS (1)
  - GALACTORRHOEA [None]
